FAERS Safety Report 4572707-7 (Version None)
Quarter: 2005Q1

REPORT INFORMATION
  Report Type: 
  Country: None (occurrence: None)
  Receive Date: 20050208
  Receipt Date: 20041207
  Transmission Date: 20050727
  Serious: Yes (Hospitalization)
  Sender: FDA-Public Use
  Company Number: US-GLAXOSMITHKLINE-A0536590A

PATIENT
  Age: 47 Year
  Sex: Male

DRUGS (3)
  1. PAXIL [Suspect]
     Route: 048
  2. ATENOLOL [Concomitant]
  3. LIPITOR [Concomitant]

REACTIONS (3)
  - CONDITION AGGRAVATED [None]
  - DIZZINESS [None]
  - HEADACHE [None]
